FAERS Safety Report 6016249-0 (Version None)
Quarter: 2008Q4

REPORT INFORMATION
  Report Type: 
  Country: None (occurrence: None)
  Receive Date: 20081218
  Receipt Date: 20081203
  Transmission Date: 20090506
  Serious: Yes (Hospitalization)
  Sender: FDA-Public Use
  Company Number: 1000003135

PATIENT
  Age: 85 Year
  Sex: Male

DRUGS (9)
  1. CITALOPRAM(CITALOPRAM HYDROCHLORIDE) [Suspect]
  2. PREVISCAN (TABLETS) [Suspect]
     Indication: PHLEBITIS
     Dosage: 20 MG, ORAL
     Route: 048
  3. FORLAX [Concomitant]
  4. ADANCOR (TABLETS) [Concomitant]
  5. DIFFU-K [Concomitant]
  6. TRIVASTAL [Concomitant]
  7. INIPOMP [Concomitant]
  8. SECTRAL [Concomitant]
  9. EBIXA(TABLETS) [Concomitant]

REACTIONS (8)
  - ANTICOAGULATION DRUG LEVEL ABOVE THERAPEUTIC [None]
  - DEHYDRATION [None]
  - EPISTAXIS [None]
  - GASTROINTESTINAL HAEMORRHAGE [None]
  - HYPERNATRAEMIA [None]
  - INTERNATIONAL NORMALISED RATIO INCREASED [None]
  - MICROCYTIC ANAEMIA [None]
  - OVERDOSE [None]
